FAERS Safety Report 5564213-8 (Version None)
Quarter: 2007Q4

REPORT INFORMATION
  Report Type: 
  Country: None (occurrence: None)
  Receive Date: 20071212
  Receipt Date: 20071126
  Transmission Date: 20080405
  Serious: Yes (Hospitalization)
  Sender: FDA-Public Use
  Company Number: 2007US002966

PATIENT
  Age: 73 Year
  Sex: Male
  Weight: 94.8 kg

DRUGS (12)
  1. AMEVIVE [Suspect]
     Indication: PSORIASIS
     Dosage: 15 MG, WEEKLY, INTRAMUSCULAR
     Route: 030
     Dates: start: 20040308, end: 20071115
  2. AUGMENTIN '125' [Suspect]
  3. ACTOS [Concomitant]
  4. ASPIRIN [Concomitant]
  5. DYNACIRC [Concomitant]
  6. FENOFIBRATE [Concomitant]
  7. HYDROCHLOROTHIAZIDE [Concomitant]
  8. LASIX [Concomitant]
  9. LISINOPRIL [Concomitant]
  10. NIFEREX (POLYSACCHARIDE-IRON COMPLEX) [Concomitant]
  11. SENOKOT (SENNA ALEXANDRINA) [Concomitant]
  12. VITAMIN D [Concomitant]

REACTIONS (11)
  - ASTHENIA [None]
  - BLOOD CREATINE INCREASED [None]
  - BLOOD GLUCOSE INCREASED [None]
  - BLOOD UREA INCREASED [None]
  - CELLULITIS [None]
  - CONFUSIONAL STATE [None]
  - DEHYDRATION [None]
  - EXCORIATION [None]
  - LEUKOCYTOSIS [None]
  - MENTAL STATUS CHANGES [None]
  - RASH [None]
